FAERS Safety Report 5965816-9 (Version None)
Quarter: 2008Q4

REPORT INFORMATION
  Report Type: 
  Country: None (occurrence: None)
  Receive Date: 20081121
  Receipt Date: 20081121
  Transmission Date: 20090506
  Serious: Yes (Other)
  Sender: FDA-Public Use
  Company Number: None

PATIENT
  Age: 48 Year
  Sex: Female
  Weight: 72.5755 kg

DRUGS (1)
  1. PEGINTERFERON ALPFA 2B 96MCG/.4ML PEGINTERFERON ALPHA 2B [Suspect]
     Indication: HEPATITIS C
     Dosage: 96MCG / .4ML Q WEEK SQ
     Route: 058
     Dates: start: 20080619, end: 20081120

REACTIONS (1)
  - ANKLE FRACTURE [None]
